FAERS Safety Report 14662030 (Version 3)
Quarter: 2018Q1

REPORT INFORMATION
  Report Type: Report from Study
  Country: None (occurrence: ES)
  Receive Date: 20180321
  Receipt Date: 20180323
  Transmission Date: 20180509
  Serious: Yes (Hospitalization)
  Sender: FDA-Public Use
  Company Number: ES-ABBVIE-18K-144-2290581-00

PATIENT
  Age: 52 Year
  Sex: Male
  Weight: 74 kg

DRUGS (2)
  1. HUMIRA [Suspect]
     Active Substance: ADALIMUMAB
     Indication: CROHN^S DISEASE
     Route: 058
     Dates: start: 2015, end: 20170330
  2. HUMIRA [Suspect]
     Active Substance: ADALIMUMAB
     Indication: CROHN^S DISEASE
     Route: 058
     Dates: start: 20180315

REACTIONS (3)
  - Ileal perforation [Recovered/Resolved]
  - Post procedural oedema [Recovered/Resolved]
  - Intra-abdominal fluid collection [Recovered/Resolved]

NARRATIVE: CASE EVENT DATE: 20170330
